FAERS Safety Report 4743033-8 (Version None)
Quarter: 2005Q3

REPORT INFORMATION
  Report Type: 
  Country: None (occurrence: None)
  Receive Date: 20050809
  Receipt Date: 20050728
  Transmission Date: 20060218
  Serious: Yes (Other)
  Sender: FDA-Public Use
  Company Number: 2005087309

PATIENT
  Age: 55 Year
  Sex: Female
  Weight: 65.318 kg

DRUGS (11)
  1. CELEBREX [Suspect]
     Indication: MONARTHRITIS
     Dosage: 200 MG (200 MG, 1 IN 1 D), ORAL
     Route: 048
  2. FOSAMAX [Concomitant]
  3. MULTIVITAMIN [Concomitant]
  4. VITAMIN B (VITAMIN B) [Concomitant]
  5. VITAMIN C (VITAMIN C) [Concomitant]
  6. VITAMIN E [Concomitant]
  7. GLUCOSAMINE (GLUCOSAMINE) [Concomitant]
  8. CALCIUM (CALCIUM) [Concomitant]
  9. ACETYLSALICYLIC ACID SRT [Concomitant]
  10. FISH OIL (FISH OIL) [Concomitant]
  11. DILTIAZEM [Concomitant]

REACTIONS (3)
  - ARTHRITIS [None]
  - ATRIAL FIBRILLATION [None]
  - CONDITION AGGRAVATED [None]
